FAERS Safety Report 5744015-X (Version None)
Quarter: 2008Q2

REPORT INFORMATION
  Report Type: 
  Country: None (occurrence: None)
  Receive Date: 20080520
  Receipt Date: 20080508
  Transmission Date: 20081010
  Serious: Yes (Hospitalization)
  Sender: FDA-Public Use
  Company Number: JP-NOVOPROD-275297

PATIENT
  Age: 52 Year

DRUGS (2)
  1. NOVOLIN N [Suspect]
     Indication: INSULIN-REQUIRING TYPE 2 DIABETES MELLITUS
     Dosage: 12 IU, UNK
     Route: 058
     Dates: start: 20071212, end: 20080118
  2. NOVORAPID CHU [Concomitant]
     Indication: INSULIN-REQUIRING TYPE 2 DIABETES MELLITUS
     Dosage: 20IU
     Route: 058
     Dates: start: 20071212, end: 20080118

REACTIONS (1)
  - HEPATIC ENZYME INCREASED [None]
